FAERS Safety Report 8973566 (Version 1)
Quarter: 2012Q4

REPORT INFORMATION
  Report Type: 
  Country: US (occurrence: US)
  Receive Date: 20121218
  Receipt Date: 20121218
  Transmission Date: 20130627
  Serious: No
  Sender: FDA-Public Use
  Company Number: US-BRISTOL-MYERS SQUIBB COMPANY-16417446

PATIENT
  Age: 16 Year
  Sex: Female
  Weight: 63.49 kg

DRUGS (3)
  1. ABILIFY TABS 2 MG [Suspect]
     Indication: AGGRESSION
     Dosage: initial dose 2mg;dose increased to 5mg;increased to 7.5mg
     Dates: start: 20120105, end: 20120223
  2. DIAZEPAM [Suspect]
     Indication: AGGRESSION
     Dates: start: 20120120
  3. DIAZEPAM [Suspect]
     Indication: ANXIETY
     Dates: start: 20120120

REACTIONS (2)
  - Myalgia [Not Recovered/Not Resolved]
  - Drug ineffective [Unknown]
